FAERS Safety Report 8887639 (Version 1)
Quarter: 2012Q4

REPORT INFORMATION
  Report Type: 
  Country: GB (occurrence: GB)
  Receive Date: 20121106
  Receipt Date: 20121106
  Transmission Date: 20130627
  Serious: Yes (Other)
  Sender: FDA-Public Use
  Company Number: GB-JNJFOC-20121016979

PATIENT
  Sex: Female

DRUGS (6)
  1. ACETAMINOPHEN/CODEINE [Suspect]
     Indication: SPINAL PAIN
     Route: 065
  2. ACETAMINOPHEN/CODEINE [Suspect]
     Indication: SPINAL PAIN
     Route: 065
     Dates: start: 2010
  3. DISOPYRAMIDE [Concomitant]
  4. MOVICOL [Concomitant]
     Indication: CONSTIPATION
  5. MULTIVITAMINS [Concomitant]
  6. OMEGA 3 FATTY ACID [Concomitant]

REACTIONS (12)
  - Drug dependence [Not Recovered/Not Resolved]
  - Agitation [Recovered/Resolved]
  - Dyspnoea [Recovering/Resolving]
  - Urinary retention [Recovering/Resolving]
  - Withdrawal syndrome [Recovered/Resolved]
  - Confusional state [Recovered/Resolved]
  - Insomnia [Recovered/Resolved]
  - Dizziness [Recovering/Resolving]
  - Malaise [Recovering/Resolving]
  - Headache [Recovering/Resolving]
  - Constipation [Not Recovered/Not Resolved]
  - Nausea [Recovering/Resolving]
